FAERS Safety Report 18052988 (Version 4)
Quarter: 2022Q1

REPORT INFORMATION
  Report Type: Report from Study
  Country: SA (occurrence: SA)
  Receive Date: 20200721
  Receipt Date: 20220211
  Transmission Date: 20220423
  Serious: Yes (Hospitalization, Other)
  Sender: FDA-Public Use
  Company Number: SA-CELLTRION INC.-2019SA026205

PATIENT

DRUGS (23)
  1. INFLIXIMAB [Suspect]
     Active Substance: INFLIXIMAB
     Indication: Inflammatory bowel disease
     Dosage: 300 MG (5MG/KG) VIA INTRAVENOUS INFUSION EVERY 0,2,6,8 WEEKS, IN 250 ML NORMAL SALINE OVER THREE HOU
     Route: 041
     Dates: start: 20181110
  2. INFLIXIMAB [Suspect]
     Active Substance: INFLIXIMAB
     Indication: Crohn^s disease
     Dosage: 296.5 MG (5MG/KG)
     Route: 041
     Dates: start: 20181204
  3. INFLIXIMAB [Suspect]
     Active Substance: INFLIXIMAB
     Dosage: 322.5 MG (5MG/KG)
     Route: 041
     Dates: start: 20190115
  4. INFLIXIMAB [Suspect]
     Active Substance: INFLIXIMAB
     Dosage: 322.5 MG (5MG/KG)
     Route: 041
     Dates: start: 20190213
  5. INFLIXIMAB [Suspect]
     Active Substance: INFLIXIMAB
     Dosage: 322.5 MG (5MG/KG)
     Route: 041
     Dates: start: 20190519
  6. INFLIXIMAB [Suspect]
     Active Substance: INFLIXIMAB
     Dosage: 322.5 MG (5MG/KG)
     Route: 041
     Dates: start: 20190911
  7. INFLIXIMAB [Suspect]
     Active Substance: INFLIXIMAB
     Dosage: 308.5 MG (5MG/KG)
     Route: 041
     Dates: start: 20200101, end: 20200101
  8. METRONIDAZOLE [Suspect]
     Active Substance: METRONIDAZOLE
     Indication: Infection prophylaxis
     Dosage: 500 MG, STAT
     Route: 042
     Dates: start: 20200107, end: 20200107
  9. HYDROCORTISONE SODIUM SUCCINATE [Concomitant]
     Active Substance: HYDROCORTISONE SODIUM SUCCINATE
     Indication: Premedication
     Dosage: 100 MG, STAT
     Route: 042
     Dates: start: 20181204, end: 20181204
  10. HYDROCORTISONE SODIUM SUCCINATE [Concomitant]
     Active Substance: HYDROCORTISONE SODIUM SUCCINATE
     Dosage: 100 MG, STAT
     Route: 042
     Dates: start: 20190115, end: 20190115
  11. HYDROCORTISONE SODIUM SUCCINATE [Concomitant]
     Active Substance: HYDROCORTISONE SODIUM SUCCINATE
     Dosage: 100 MG, STAT
     Route: 042
     Dates: start: 20190213, end: 20190213
  12. HYDROCORTISONE SODIUM SUCCINATE [Concomitant]
     Active Substance: HYDROCORTISONE SODIUM SUCCINATE
     Dosage: 100 MG, STAT
     Route: 042
     Dates: start: 20190519, end: 20190519
  13. HYDROCORTISONE SODIUM SUCCINATE [Concomitant]
     Active Substance: HYDROCORTISONE SODIUM SUCCINATE
     Dosage: 100 MG, STAT
     Route: 042
     Dates: start: 20190911, end: 20190911
  14. HYDROCORTISONE SODIUM SUCCINATE [Concomitant]
     Active Substance: HYDROCORTISONE SODIUM SUCCINATE
     Dosage: 100 MG, STAT
     Route: 042
     Dates: start: 20200101, end: 20200101
  15. PREDNISOLONE [Concomitant]
     Active Substance: PREDNISOLONE
     Indication: Antiinflammatory therapy
     Dosage: 200 MG,1 IN 1 D
     Route: 048
     Dates: start: 20191125, end: 20191227
  16. ACETAMINOPHEN [Concomitant]
     Active Substance: ACETAMINOPHEN
     Indication: Pain
     Dosage: 1000 MG, STAT
     Route: 042
     Dates: start: 20191126, end: 20191126
  17. ACETAMINOPHEN [Concomitant]
     Active Substance: ACETAMINOPHEN
     Dosage: 1000 MG, STAT
     Route: 042
     Dates: start: 20200107, end: 20200107
  18. CIPROFLOXACIN LACTATE [Concomitant]
     Active Substance: CIPROFLOXACIN LACTATE
     Indication: Infection prophylaxis
     Dosage: 200 MG, STAT
     Route: 042
     Dates: start: 20200107, end: 20200107
  19. OMEPRAZOLE [Concomitant]
     Active Substance: OMEPRAZOLE
     Indication: Prophylaxis
     Dosage: 40 MG,1 IN 1 D
     Route: 042
     Dates: start: 20200107, end: 20200109
  20. OMEPRAZOLE [Concomitant]
     Active Substance: OMEPRAZOLE
     Indication: Pain prophylaxis
  21. METHYLPREDNISOLONE SODIUM SUCCINATE [Concomitant]
     Active Substance: METHYLPREDNISOLONE SODIUM SUCCINATE
     Indication: Antiinflammatory therapy
     Dosage: 60 MG STAT
     Route: 030
     Dates: start: 20191126, end: 20191126
  22. METHYLPREDNISOLONE SODIUM SUCCINATE [Concomitant]
     Active Substance: METHYLPREDNISOLONE SODIUM SUCCINATE
     Dosage: UNK
     Route: 030
     Dates: start: 20191226
  23. PREDNISONE [Concomitant]
     Active Substance: PREDNISONE
     Indication: Antiinflammatory therapy
     Dosage: 40 MG,1 D
     Route: 048
     Dates: start: 20191125, end: 20191227

REACTIONS (9)
  - Colitis [Recovered/Resolved]
  - Terminal ileitis [Recovered/Resolved]
  - Appendicitis noninfective [Recovered/Resolved]
  - Lymphadenopathy [Recovered/Resolved]
  - Abdominal tenderness [Recovered/Resolved]
  - Overdose [Unknown]
  - Loss of therapeutic response [Unknown]
  - Off label use [Unknown]
  - Inappropriate schedule of product administration [Unknown]

NARRATIVE: CASE EVENT DATE: 20181204
